FAERS Safety Report 7301713-4 (Version None)
Quarter: 2011Q1

REPORT INFORMATION
  Report Type: 
  Country: None (occurrence: None)
  Receive Date: 20110208
  Receipt Date: 20110128
  Transmission Date: 20110831
  Serious: Yes (Hospitalization, Other)
  Sender: FDA-Public Use
  Company Number: SE-004616

PATIENT
  Sex: Female
  Weight: 68.9 kg

DRUGS (6)
  1. VIBRAMYCIN [Concomitant]
  2. CALCICHEW [Concomitant]
  3. MINIRIN [Suspect]
     Indication: PRODUCT USED FOR UNKNOWN INDICATION
  4. SOMATROPIN [Concomitant]
  5. KAVEPENIN [Concomitant]
  6. GESTAPURAN [Concomitant]

REACTIONS (7)
  - INAPPROPRIATE ANTIDIURETIC HORMONE SECRETION [None]
  - DRUG ADMINISTRATION ERROR [None]
  - FATIGUE [None]
  - PYREXIA [None]
  - LETHARGY [None]
  - NAUSEA [None]
  - VOMITING [None]
